FAERS Safety Report 19200143 (Version 1)
Quarter: 2021Q2

REPORT INFORMATION
  Report Type: Spontaneous
  Country: GB (occurrence: GB)
  Receive Date: 20210430
  Receipt Date: 20210430
  Transmission Date: 20210717
  Serious: Yes (Death, Hospitalization, Congenital Anomaly, Other)
  Sender: FDA-Public Use
  Company Number: GB-AMGEN-GBRSP2021049926

PATIENT
  Age: 79 Year
  Sex: Female
  Weight: 75 kg

DRUGS (16)
  1. SERETIDE [Concomitant]
     Active Substance: FLUTICASONE PROPIONATE\SALMETEROL XINAFOATE
     Indication: ILL-DEFINED DISORDER
     Dosage: UNK
     Dates: start: 20171120
  2. ADALIMUMAB [Suspect]
     Active Substance: ADALIMUMAB
     Indication: ARTHRITIS
     Dosage: UNK
     Route: 058
     Dates: start: 202101
  3. FOLIC ACID. [Concomitant]
     Active Substance: FOLIC ACID
     Indication: ILL-DEFINED DISORDER
     Dosage: UNK
     Dates: start: 20210125
  4. LORATADINE. [Concomitant]
     Active Substance: LORATADINE
     Indication: ILL-DEFINED DISORDER
     Dosage: UNK
     Dates: start: 20080717
  5. NEFOPAM [Concomitant]
     Active Substance: NEFOPAM
     Indication: ILL-DEFINED DISORDER
     Dosage: UNK
     Dates: start: 20160413
  6. COSMOCOL [Concomitant]
     Indication: ILL-DEFINED DISORDER
     Dosage: UNK
     Dates: start: 20210125
  7. FERROUS FUMARATE [Concomitant]
     Active Substance: FERROUS FUMARATE
     Indication: ILL-DEFINED DISORDER
     Dosage: UNK
     Dates: start: 20210125
  8. VENTOLIN [Concomitant]
     Active Substance: ALBUTEROL SULFATE
     Indication: ILL-DEFINED DISORDER
     Dosage: UNK
     Dates: start: 20171019
  9. METHOTREXATE. [Suspect]
     Active Substance: METHOTREXATE
     Indication: ARTHRITIS
     Dosage: 17.5 MILLIGRAM, QWK
     Route: 058
     Dates: start: 201707
  10. TILDIEM LA [Concomitant]
     Active Substance: DILTIAZEM HYDROCHLORIDE
     Indication: ILL-DEFINED DISORDER
     Dosage: UNK
     Dates: start: 20021025
  11. METFORMIN [Concomitant]
     Active Substance: METFORMIN HYDROCHLORIDE
     Indication: ILL-DEFINED DISORDER
     Dosage: UNK
     Dates: start: 20080701
  12. PARACETAMOL [Concomitant]
     Active Substance: ACETAMINOPHEN
     Indication: ILL-DEFINED DISORDER
     Dosage: UNK
     Dates: start: 20151019
  13. LOSARTAN. [Concomitant]
     Active Substance: LOSARTAN
     Indication: ILL-DEFINED DISORDER
     Dosage: UNK
     Dates: start: 20080912
  14. TOLTERODINE [Concomitant]
     Active Substance: TOLTERODINE
     Indication: ILL-DEFINED DISORDER
     Dosage: UNK
     Dates: start: 20150312
  15. ASCORBIC ACID. [Concomitant]
     Active Substance: ASCORBIC ACID
     Indication: ILL-DEFINED DISORDER
     Dosage: UNK
     Dates: start: 20210125
  16. LANSOPRAZOLE. [Concomitant]
     Active Substance: LANSOPRAZOLE
     Indication: ILL-DEFINED DISORDER
     Dosage: UNK
     Dates: start: 20171025

REACTIONS (5)
  - Pneumocystis jirovecii pneumonia [Fatal]
  - Respiratory failure [Not Recovered/Not Resolved]
  - Pyrexia [Unknown]
  - Dyspnoea [Unknown]
  - Cough [Unknown]

NARRATIVE: CASE EVENT DATE: 20210301
